FAERS Safety Report 10033968 (Version 1)
Quarter: 2014Q1

REPORT INFORMATION
  Report Type: Spontaneous
  Country: US (occurrence: None)
  Receive Date: 20140320
  Receipt Date: 20140320
  Transmission Date: 20141002
  Serious: Yes (Other)
  Sender: FDA-Public Use
  Company Number: NO-SEPTODONT-201401795

PATIENT
  Age: 67 Year
  Sex: Female

DRUGS (3)
  1. ARTICAINE HYDROCHLORIDE EPINEPHRINE TARTRATE [Suspect]
     Indication: LOCAL ANAESTHESIA
     Dosage: 0.8ML DENTAL
     Dates: start: 20140220, end: 20140220
  2. BETMIGA [Concomitant]
  3. CANDESARTAN [Concomitant]

REACTIONS (4)
  - Pallor [None]
  - Nasopharyngitis [None]
  - Cyanosis [None]
  - Unevaluable event [None]
